FAERS Safety Report 22626099 (Version 1)
Quarter: 2023Q2

REPORT INFORMATION
  Report Type: Report from Study
  Country: US (occurrence: US)
  Receive Date: 20230621
  Receipt Date: 20230621
  Transmission Date: 20230722
  Serious: Yes (Other)
  Sender: FDA-Public Use
  Company Number: US-TAKEDA-2023TUS027404

PATIENT
  Age: 29 Year
  Sex: Male

DRUGS (1)
  1. RECOMBINATE [Suspect]
     Active Substance: ANTIHEMOPHILIC FACTOR, HUMAN RECOMBINANT
     Indication: Product used for unknown indication
     Dosage: 1600 INTERNATIONAL UNIT
     Route: 065

REACTIONS (3)
  - Haemorrhage [Recovered/Resolved]
  - Joint injury [Unknown]
  - Accident at work [Unknown]

NARRATIVE: CASE EVENT DATE: 20230314
